FAERS Safety Report 6557646-4 (Version None)
Quarter: 2010Q1

REPORT INFORMATION
  Report Type: 
  Country: None (occurrence: None)
  Receive Date: 20100126
  Receipt Date: 20090929
  Transmission Date: 20100710
  Serious: Yes (Other)
  Sender: FDA-Public Use
  Company Number: LMI-2009-00266

PATIENT
  Age: 63 Year
  Sex: Male
  Weight: 83.0083 kg

DRUGS (9)
  1. DEFINITY [Suspect]
     Indication: ECHOCARDIOGRAM
     Dosage: .5 ML OF UNDILLUTED DEFINITY FOLLOWED WITH 1 ML OF NORMAL SALINE FLUSH (0.5 ML),INTRAVENOUS BOLUS
     Route: 040
     Dates: start: 20090929, end: 20090929
  2. DEFINITY [Suspect]
     Indication: EJECTION FRACTION
     Dosage: .5 ML OF UNDILLUTED DEFINITY FOLLOWED WITH 1 ML OF NORMAL SALINE FLUSH (0.5 ML),INTRAVENOUS BOLUS
     Route: 040
     Dates: start: 20090929, end: 20090929
  3. DRISDOL (ERGOCALCIFEROL) (CAPSULES) [Concomitant]
  4. FOLIC ACID(FOLIC ACID) (TABLETS) [Concomitant]
  5. GABAPENTIN [Concomitant]
  6. LISINOPRIL/HCTZ (HYDROCHLOROTHIAZIDE, LISINOPRIL) [Concomitant]
  7. TRICOR [Concomitant]
  8. VERAPAMIL [Concomitant]
  9. ZOCOR [Concomitant]

REACTIONS (3)
  - ATRIAL FIBRILLATION [None]
  - GRAND MAL CONVULSION [None]
  - VENTRICULAR EXTRASYSTOLES [None]
